FAERS Safety Report 25046798 (Version 1)
Quarter: 2025Q1

REPORT INFORMATION
  Report Type: Spontaneous
  Country: US (occurrence: US)
  Receive Date: 20250306
  Receipt Date: 20250306
  Transmission Date: 20250409
  Serious: No
  Sender: ITALFARMACO SPA
  Company Number: US-ITALFARMACO SPA-2172379

PATIENT
  Age: 14 Year
  Sex: Male
  Weight: 77 kg

DRUGS (1)
  1. DUVYZAT [Suspect]
     Active Substance: GIVINOSTAT
     Dates: start: 20250103

REACTIONS (2)
  - Diarrhoea [Unknown]
  - Hypoaesthesia [Recovered/Resolved]
